FAERS Safety Report 14323767 (Version 1)
Quarter: 2017Q4

REPORT INFORMATION
  Report Type: Spontaneous
  Country: US (occurrence: US)
  Receive Date: 20171226
  Receipt Date: 20171226
  Transmission Date: 20180321
  Serious: Yes (Hospitalization, Other)
  Sender: FDA-Public Use
  Company Number: US-AMGEN-USASP2017189269

PATIENT
  Age: 65 Year
  Sex: Female

DRUGS (1)
  1. CORLANOR [Suspect]
     Active Substance: IVABRADINE HYDROCHLORIDE
     Indication: LEFT VENTRICULAR FAILURE
     Dosage: UNK
     Route: 065

REACTIONS (2)
  - Torsade de pointes [Recovered/Resolved]
  - Unevaluable event [Recovered/Resolved]

NARRATIVE: CASE EVENT DATE: 201712
